FAERS Safety Report 8486905 (Version 4)
Quarter: 2012Q4

REPORT INFORMATION
  Report Type: 
  Country: US (occurrence: US)
  Receive Date: 20120402
  Receipt Date: 20121017
  Transmission Date: 20130627
  Serious: Yes (Hospitalization)
  Sender: FDA-Public Use
  Company Number: US-ACTELION-A-NJ2012-63196

PATIENT
  Age: 51 Year
  Sex: Female

DRUGS (2)
  1. TRACLEER [Suspect]
     Indication: PULMONARY ARTERIAL HYPERTENSION
     Dosage: UNK
     Route: 048
  2. REVATIO [Concomitant]

REACTIONS (5)
  - Endotracheal intubation [Unknown]
  - Syncope [Unknown]
  - Sepsis [Unknown]
  - Clostridium difficile colitis [Unknown]
  - Ankle fracture [Recovered/Resolved]
